FAERS Safety Report 9700755 (Version 2)
Quarter: 2013Q4

REPORT INFORMATION
  Report Type: Spontaneous
  Country: US (occurrence: US)
  Receive Date: 20131121
  Receipt Date: 20131202
  Transmission Date: 20140711
  Serious: No
  Sender: FDA-Public Use
  Company Number: US-PFIZER INC-2013331827

PATIENT
  Age: 51 Year
  Sex: Female
  Weight: 64.4 kg

DRUGS (17)
  1. LYRICA [Suspect]
     Indication: NERVE INJURY
     Dosage: 75 MG, 1X/DAY
     Route: 048
  2. LYRICA [Suspect]
     Dosage: 150 MG, 1X/DAY (75 MG 2 PO BID)
     Route: 048
  3. OXYCODONE [Concomitant]
     Indication: HEADACHE
     Dosage: 10/325 MG, UNK
  4. ASA [Concomitant]
     Dosage: UNK
  5. CLONAZEPAM [Concomitant]
     Dosage: 0.5 MG, UNK
  6. DIVALPROEX SODIUM [Concomitant]
     Dosage: 500 MG, UNK
  7. LEVOTHYROXINE [Concomitant]
     Dosage: 75 MG, UNK
  8. LISINOPRIL [Concomitant]
     Dosage: 20 MG, UNK
  9. OMEPRAZOLE [Concomitant]
     Dosage: 40 MG, UNK
  10. PROMETHAZINE [Concomitant]
     Dosage: 25 MG, UNK
  11. MECLIZINE [Concomitant]
     Dosage: 25 MG, UNK
  12. BETAMETHASONE DIPROPIONATE [Concomitant]
     Indication: DERMATITIS
     Dosage: UNK
  13. SYSTANE [Concomitant]
     Dosage: UNK
  14. LIDOCAINE [Concomitant]
     Indication: PAIN IN JAW
     Dosage: UNK
  15. LIDOCAINE [Concomitant]
     Indication: HEADACHE
  16. PRILOCAINE [Concomitant]
     Indication: PAIN IN JAW
     Dosage: UNK
  17. PRILOCAINE [Concomitant]
     Indication: HEADACHE

REACTIONS (3)
  - Off label use [Unknown]
  - Headache [Unknown]
  - Pain [Unknown]
